FAERS Safety Report 23105822 (Version 1)
Quarter: 2023Q4

REPORT INFORMATION
  Report Type: Spontaneous
  Country: JP (occurrence: JP)
  Receive Date: 20231025
  Receipt Date: 20231025
  Transmission Date: 20240110
  Serious: Yes (Hospitalization)
  Sender: FDA-Public Use
  Company Number: JP-Eisai-202308396_LEN_P_1

PATIENT
  Sex: Female

DRUGS (6)
  1. LENVIMA [Suspect]
     Active Substance: LENVATINIB
     Indication: Thyroid cancer
     Route: 048
     Dates: start: 20220315, end: 20220413
  2. LENVIMA [Suspect]
     Active Substance: LENVATINIB
     Route: 048
     Dates: start: 20220414, end: 20220427
  3. LENVIMA [Suspect]
     Active Substance: LENVATINIB
     Dosage: BETWEEN MONDAY AND FRIDAY ORAL ADMINISTRATION, INTERRUPTION ON SATURDAY AND SUNDAY
     Route: 048
     Dates: start: 20220428, end: 20220623
  4. LENVIMA [Suspect]
     Active Substance: LENVATINIB
     Dosage: BETWEEN MONDAY AND FRIDAY ORAL ADMINISTRATION, INTERRUPTION ON SATURDAY AND SUNDAY
     Route: 048
     Dates: start: 20220624, end: 20220824
  5. LENVIMA [Suspect]
     Active Substance: LENVATINIB
     Dosage: BETWEEN MONDAY AND FRIDAY ORAL ADMINISTRATION, INTERRUPTION ON SATURDAY AND SUNDAY
     Route: 048
     Dates: start: 20220825
  6. LENVIMA [Suspect]
     Active Substance: LENVATINIB
     Dosage: BETWEEN MONDAY AND FRIDAY ORAL ADMINISTRATION, INTERRUPTION ON SATURDAY AND SUNDAY
     Route: 048
     Dates: start: 20230317, end: 20230331

REACTIONS (1)
  - Enterocolitis [Unknown]

NARRATIVE: CASE EVENT DATE: 20230228
